FAERS Safety Report 5135943-7 (Version None)
Quarter: 2006Q4

REPORT INFORMATION
  Report Type: 
  Country: None (occurrence: None)
  Receive Date: 20061020
  Receipt Date: 20061009
  Transmission Date: 20070319
  Serious: Yes (Other)
  Sender: FDA-Public Use
  Company Number: 2006125457

PATIENT
  Age: 37 Year
  Sex: Male

DRUGS (8)
  1. PREGABALIN (PREGABALIN) [Suspect]
     Indication: PAIN
     Dosage: 150 MG (75 MG, 2 IN 1 D), ORAL
     Route: 048
     Dates: start: 20060629, end: 20060713
  2. ATENOLOL [Concomitant]
  3. BECLOMETHASONE (BECLOMETHASONE) [Concomitant]
  4. BUPRENORPHINE HCL [Concomitant]
  5. LANSOPRAZOLE [Concomitant]
  6. LIGNOCAINE (LIGNOCANE) [Concomitant]
  7. SALBUTAMOL (SALBUTAMOL) [Concomitant]
  8. TRAMADOL HCL [Concomitant]

REACTIONS (4)
  - MUSCLE RIGIDITY [None]
  - MUSCLE SPASMS [None]
  - PARAESTHESIA [None]
  - TREMOR [None]
